FAERS Safety Report 15618441 (Version 3)
Quarter: 2020Q3

REPORT INFORMATION
  Report Type: Spontaneous
  Country: US (occurrence: US)
  Receive Date: 20181114
  Receipt Date: 20200803
  Transmission Date: 20201102
  Serious: No
  Sender: FDA-Public Use
  Company Number: US-PFIZER INC-2018456908

PATIENT
  Age: 71 Year
  Sex: Female
  Weight: 92.53 kg

DRUGS (3)
  1. GENOTROPIN MQ [Suspect]
     Active Substance: SOMATROPIN
     Indication: HYPOPITUITARISM
     Dosage: 0.6 MG, ALTERNATE DAY
  2. UNITHROID [Concomitant]
     Active Substance: LEVOTHYROXINE SODIUM
     Indication: HYPOTHYROIDISM
     Dosage: 100 UG, 1X/DAY
  3. GENOTROPIN MQ [Suspect]
     Active Substance: SOMATROPIN
     Indication: GROWTH HORMONE DEFICIENCY
     Dosage: 0.4 MG, DAILY
     Route: 058

REACTIONS (12)
  - Haemoglobin decreased [Unknown]
  - Mean cell haemoglobin decreased [Unknown]
  - Red cell distribution width increased [Unknown]
  - Breast tenderness [Unknown]
  - Blood urea nitrogen/creatinine ratio increased [Unknown]
  - Intentional product misuse [Unknown]
  - Pain [Unknown]
  - Peripheral coldness [Unknown]
  - Hyperaesthesia [Unknown]
  - Weight increased [Unknown]
  - Polyuria [Unknown]
  - Mean cell haemoglobin concentration decreased [Unknown]
